FAERS Safety Report 7554862 (Version 3)
Quarter: 2015Q2

REPORT INFORMATION
  Report Type: Report from Study
  Country: GB (occurrence: GB)
  Receive Date: 20100826
  Receipt Date: 20150511
  Transmission Date: 20150821
  Serious: Yes (Death)
  Sender: FDA-Public Use
  Company Number: GB-ROCHE-722088

PATIENT
  Sex: Male
  Weight: 75 kg

DRUGS (8)
  1. TAMSULOSIN [Concomitant]
     Active Substance: TAMSULOSIN
     Dosage: TREATMENT STOPPED.
     Route: 048
  2. GLICLAZIDE [Concomitant]
     Active Substance: GLICLAZIDE
     Dosage: TREATMENT STOPPED.
     Route: 048
  3. CAPECITABINE. [Suspect]
     Active Substance: CAPECITABINE
     Indication: ADENOCARCINOMA GASTRIC
     Dosage: LAST DOSE PRIOR TO SAE: 24 APRIL 2010, TREATMENT STOPPED, CYCLE AND DOSE NUMBER: 3
     Route: 048
  4. EPIRUBICIN [Suspect]
     Active Substance: EPIRUBICIN
     Indication: ADENOCARCINOMA GASTRIC
     Dosage: DATE OF MOST RECENT ADMINISTRATION: 15 APRIL 2010. TREATMENT STOPPED. CYCLE AND DOSE NUMBER: 3
     Route: 042
     Dates: start: 20100224
  5. BEVACIZUMAB [Suspect]
     Active Substance: BEVACIZUMAB
     Indication: ADENOCARCINOMA GASTRIC
     Dosage: LAST DOSE PRIOR TO SAE: 24 FEBRUARY 2010, TREATMENT STOPPED, CYCLE AND DOSE NUMBER: 3
     Route: 048
  6. CISPLATIN. [Suspect]
     Active Substance: CISPLATIN
     Indication: ADENOCARCINOMA GASTRIC
     Dosage: LAST DOE PRIOR TO SAE: 15 APRIL 2010, TREATMENT STOPPED, CYCLE AND DOSE NUMBER: 3
     Route: 042
     Dates: start: 20100224
  7. METFORMIN [Concomitant]
     Active Substance: METFORMIN HYDROCHLORIDE
     Dosage: REPORTED AS: DAOMIN, TREATMENT STOPPED.
     Route: 042
  8. RAMIPRIL. [Concomitant]
     Active Substance: RAMIPRIL
     Dosage: TREATMENT STOPPED.
     Route: 048

REACTIONS (1)
  - Sudden death [Fatal]
